FAERS Safety Report 18808027 (Version 1)
Quarter: 2021Q1

REPORT INFORMATION
  Report Type: Spontaneous
  Country: US (occurrence: US)
  Receive Date: 20210129
  Receipt Date: 20210129
  Transmission Date: 20210419
  Serious: Yes (Hospitalization)
  Sender: FDA-Public Use
  Company Number: None

PATIENT
  Age: 77 Year
  Sex: Female

DRUGS (11)
  1. CLOBETASOL [Concomitant]
     Active Substance: CLOBETASOL
  2. FAMOTIDINE. [Concomitant]
     Active Substance: FAMOTIDINE
  3. ACYCLOVIR. [Concomitant]
     Active Substance: ACYCLOVIR
  4. FORTEO [Suspect]
     Active Substance: TERIPARATIDE
     Indication: OSTEOPOROSIS
     Route: 058
     Dates: start: 20190626
  5. METOPROL TAR [Concomitant]
  6. TRIAMCINOLON [Concomitant]
  7. DOFETILIDE. [Concomitant]
     Active Substance: DOFETILIDE
  8. ELIQUIS [Concomitant]
     Active Substance: APIXABAN
  9. OMEPRAZOLE. [Concomitant]
     Active Substance: OMEPRAZOLE
  10. A?HYDROCORT [Concomitant]
     Active Substance: HYDROCORTISONE SODIUM SUCCINATE
  11. DOXYCYCL HYC [Concomitant]

REACTIONS (2)
  - Atrial fibrillation [None]
  - Therapy interrupted [None]
